FAERS Safety Report 22031703 (Version 1)
Quarter: 2023Q1

REPORT INFORMATION
  Report Type: Other
  Country: CN (occurrence: None)
  Receive Date: 20230224
  Receipt Date: 20230224
  Transmission Date: 20230418
  Serious: Yes (Other)
  Sender: FDA-Public Use
  Company Number: CN-ROCHE-3289748

PATIENT
  Sex: Female

DRUGS (4)
  1. GAVRETO [Suspect]
     Active Substance: PRALSETINIB
     Indication: Lung neoplasm malignant
     Route: 048
     Dates: start: 20210915
  2. ENDOSTATIN [Concomitant]
     Active Substance: ENDOSTATIN
  3. OPDIVO [Concomitant]
     Active Substance: NIVOLUMAB
  4. EUTHYROX [Concomitant]
     Active Substance: LEVOTHYROXINE SODIUM

REACTIONS (4)
  - Hypothyroidism [Unknown]
  - Platelet count decreased [Recovering/Resolving]
  - Anaemia [Recovering/Resolving]
  - Hepatic lesion [Unknown]

NARRATIVE: CASE EVENT DATE: 20230125
